FAERS Safety Report 7800504-5 (Version None)
Quarter: 2011Q4

REPORT INFORMATION
  Report Type: 
  Country: None (occurrence: None)
  Receive Date: 20111006
  Receipt Date: 20110930
  Transmission Date: 20120403
  Serious: Yes (Hospitalization)
  Sender: FDA-Public Use
  Company Number: JP-B.I. PHARMACEUTICALS,INC./RIDGEFIELD-2011-BP-19370NB

PATIENT
  Sex: Female
  Weight: 44.8 kg

DRUGS (6)
  1. FUROSEMIDE [Concomitant]
     Dosage: 40 MG
     Route: 048
     Dates: start: 20110706, end: 20110805
  2. MAOREAD [Concomitant]
     Route: 048
  3. CARVEDILOL [Concomitant]
     Dosage: 5 MG
     Route: 048
     Dates: start: 20110706, end: 20110805
  4. PRADAXA [Suspect]
     Indication: ATRIAL FIBRILLATION
     Dosage: 220 MG
     Route: 048
     Dates: start: 20110706, end: 20110805
  5. EXFORGE [Concomitant]
     Route: 048
     Dates: start: 20110627, end: 20110805
  6. YOULACTONE [Concomitant]
     Dosage: 25 MG
     Route: 048
     Dates: start: 20110627, end: 20110805

REACTIONS (2)
  - BRAIN NEOPLASM [None]
  - CEREBRAL HAEMORRHAGE [None]
